FAERS Safety Report 21676463 (Version 1)
Quarter: 2022Q4

REPORT INFORMATION
  Report Type: Spontaneous
  Country: US (occurrence: US)
  Receive Date: 20221202
  Receipt Date: 20221202
  Transmission Date: 20230113
  Serious: No
  Sender: FDA-Public Use
  Company Number: US-009507513-2211USA009393

PATIENT
  Age: 17 Year
  Sex: Male

DRUGS (7)
  1. CUBICIN [Suspect]
     Active Substance: DAPTOMYCIN
     Indication: Mucormycosis
  2. CUBICIN [Suspect]
     Active Substance: DAPTOMYCIN
     Indication: Osteomyelitis
  3. PIPERACILLIN AND TAZOBACTAM [Concomitant]
     Active Substance: PIPERACILLIN SODIUM\TAZOBACTAM SODIUM
  4. LINEZOLID [Concomitant]
     Active Substance: LINEZOLID
  5. MEROPENEM [Concomitant]
     Active Substance: MEROPENEM
  6. AMPHOTERICIN B [Concomitant]
     Active Substance: AMPHOTERICIN B
  7. ISAVUCONAZOLE [Concomitant]
     Active Substance: ISAVUCONAZOLE

REACTIONS (1)
  - Product use in unapproved indication [Unknown]
